FAERS Safety Report 5878016-8 (Version None)
Quarter: 2008Q3

REPORT INFORMATION
  Report Type: 
  Country: None (occurrence: None)
  Receive Date: 20080911
  Receipt Date: 20080904
  Transmission Date: 20090109
  Serious: Yes (Hospitalization)
  Sender: FDA-Public Use
  Company Number: GR-TEVA-177089ISR

PATIENT
  Age: 45 Year
  Sex: Female

DRUGS (1)
  1. COPAXONE [Suspect]
     Dates: start: 20080206, end: 20080501

REACTIONS (3)
  - ANURIA [None]
  - DELUSION [None]
  - EYE HAEMORRHAGE [None]
